FAERS Safety Report 24617721 (Version 2)
Quarter: 2025Q2

REPORT INFORMATION
  Report Type: Spontaneous
  Country: ES (occurrence: ES)
  Receive Date: 20241114
  Receipt Date: 20250527
  Transmission Date: 20250717
  Serious: Yes (Other)
  Sender: RANBAXY
  Company Number: ES-AEMPS-1574547

PATIENT
  Age: 45 Year
  Sex: Male
  Weight: 83 kg

DRUGS (4)
  1. AMOXICILLIN\CLAVULANIC ACID [Suspect]
     Active Substance: AMOXICILLIN\CLAVULANIC ACID
     Indication: Pyrexia
     Dosage: 875MG/125MG/8H
     Route: 048
     Dates: start: 20240226, end: 20240229
  2. AZITHROMYCIN [Suspect]
     Active Substance: AZITHROMYCIN
     Indication: Sexually transmitted disease
     Dosage: 500MG/24H
     Route: 048
     Dates: start: 20240229, end: 20240303
  3. CIPROFLOXACIN [Suspect]
     Active Substance: CIPROFLOXACIN
     Indication: Sexually transmitted disease
     Route: 048
     Dates: start: 20240302, end: 20240302
  4. CEFTRIAXONE [Suspect]
     Active Substance: CEFTRIAXONE
     Indication: Sexually transmitted disease
     Route: 030
     Dates: start: 20240301, end: 202403

REACTIONS (1)
  - Mixed liver injury [Recovering/Resolving]

NARRATIVE: CASE EVENT DATE: 20240303
